FAERS Safety Report 18598189 (Version 1)
Quarter: 2020Q4

REPORT INFORMATION
  Report Type: Spontaneous
  Country: US (occurrence: US)
  Receive Date: 20201210
  Receipt Date: 20201210
  Transmission Date: 20210114
  Serious: No
  Sender: FDA-Public Use
  Company Number: US-009507513-2012USA000217

PATIENT
  Age: 74 Year
  Sex: Male
  Weight: 75 kg

DRUGS (7)
  1. REMERON [Suspect]
     Active Substance: MIRTAZAPINE
     Indication: INSOMNIA
     Dosage: 7.5 MILLIGRAM
     Route: 048
     Dates: start: 201602
  2. MEMANTINE. [Concomitant]
     Active Substance: MEMANTINE
     Indication: COGNITIVE DISORDER
     Dosage: 5 MILLIGRAM, QD
     Dates: start: 201602
  3. QUETIAPINE FUMARATE. [Concomitant]
     Active Substance: QUETIAPINE FUMARATE
     Indication: AGGRESSION
     Dosage: 25 MILLIGRAM, BID
  4. DIVALPROEX SODIUM. [Concomitant]
     Active Substance: DIVALPROEX SODIUM
     Dosage: 250 MILLIGRAM, INCREASED 2 MONTHS PRIOR TO THIS ADMISSION
     Dates: start: 201801
  5. DIVALPROEX SODIUM. [Concomitant]
     Active Substance: DIVALPROEX SODIUM
     Indication: CRANIOCEREBRAL INJURY
     Dosage: 125 MILLIGRAM, BID
     Dates: start: 201605
  6. REMERON [Suspect]
     Active Substance: MIRTAZAPINE
     Indication: MOOD ALTERED
  7. QUETIAPINE FUMARATE. [Concomitant]
     Active Substance: QUETIAPINE FUMARATE
     Indication: CRANIOCEREBRAL INJURY
     Dosage: 50 MILLIGRAM, BID

REACTIONS (2)
  - Product use in unapproved indication [Unknown]
  - Depressive symptom [Unknown]
